FAERS Safety Report 7140802 (Version 2)
Quarter: 2013Q4

REPORT INFORMATION
  Report Type: Report from Study
  Country: JP (occurrence: JP)
  Receive Date: 20091006
  Receipt Date: 20131226
  Transmission Date: 20140711
  Serious: Yes (Hospitalization, Other)
  Sender: FDA-Public Use
  Company Number: PHHY2009JP38014

PATIENT
  Age: 84 Year
  Sex: Male

DRUGS (4)
  1. AMN107 [Suspect]
     Indication: CHRONIC MYELOID LEUKAEMIA
     Dosage: 800 MG DAILY
     Route: 048
     Dates: start: 20090602, end: 20090730
  2. AMN107 [Suspect]
     Dosage: 400 MG DAILY
     Route: 048
     Dates: start: 20090805, end: 20090826
  3. ALLEGRA [Concomitant]
     Dosage: 120 MG
     Route: 048
     Dates: start: 20050726
  4. PREDONINE [Concomitant]
     Dosage: 20 MG
     Route: 048
     Dates: start: 20090415

REACTIONS (11)
  - Electrocardiogram QT prolonged [Recovered/Resolved]
  - Interstitial lung disease [Recovering/Resolving]
  - Hypocalcaemia [Recovered/Resolved]
  - White blood cell count decreased [Recovered/Resolved]
  - Neutrophil count decreased [Recovered/Resolved]
  - Lymphocyte count decreased [Recovered/Resolved]
  - Enterocolitis [Unknown]
  - Hepatic function abnormal [Recovered/Resolved]
  - Blood bilirubin increased [Recovered/Resolved]
  - Tremor [Recovered/Resolved]
  - Rash [Recovered/Resolved]
